FAERS Safety Report 11919385 (Version 1)
Quarter: 2016Q1

REPORT INFORMATION
  Report Type: Spontaneous
  Country: US (occurrence: None)
  Receive Date: 20160114
  Receipt Date: 20160114
  Transmission Date: 20160526
  Serious: No
  Sender: FDA-Public Use
  Company Number: None

PATIENT
  Age: 53 Year
  Sex: Female

DRUGS (2)
  1. HUMALOG [Suspect]
     Active Substance: INSULIN LISPRO
  2. TAMOXIFEN [Suspect]
     Active Substance: TAMOXIFEN

REACTIONS (4)
  - Blood glucose decreased [None]
  - Nausea [None]
  - Decreased appetite [None]
  - Vomiting [None]
